FAERS Safety Report 22134677 (Version 1)
Quarter: 2023Q1

REPORT INFORMATION
  Report Type: Spontaneous
  Country: US (occurrence: US)
  Receive Date: 20230324
  Receipt Date: 20230324
  Transmission Date: 20230418
  Serious: No
  Sender: FDA-Public Use
  Company Number: US-NEUROCRINE BIOSCIENCES INC.-2023NBI02114

PATIENT

DRUGS (4)
  1. INGREZZA [Suspect]
     Active Substance: VALBENAZINE
     Indication: Product used for unknown indication
     Dosage: 40 MILLIGRAM,UNK
     Route: 065
  2. REXULTI [Suspect]
     Active Substance: BREXPIPRAZOLE
     Indication: Major depression
     Dosage: 1 MILLIGRAM,UNK
     Route: 065
  3. REXULTI [Suspect]
     Active Substance: BREXPIPRAZOLE
     Dosage: 0.5 MILLIGRAM,UNK
     Route: 065
  4. VIIBRYD [Concomitant]
     Active Substance: VILAZODONE HYDROCHLORIDE
     Indication: Product used for unknown indication
     Dosage: UNKNOWN
     Route: 065

REACTIONS (3)
  - Drug intolerance [Unknown]
  - Dyskinesia [Unknown]
  - Tremor [Unknown]
